FAERS Safety Report 23790544 (Version 1)
Quarter: 2024Q2

REPORT INFORMATION
  Report Type: Spontaneous
  Country: US (occurrence: US)
  Receive Date: 20240427
  Receipt Date: 20240427
  Transmission Date: 20240715
  Serious: Yes (Other)
  Sender: FDA-Public Use
  Company Number: US-NOVITIUMPHARMA-2024USNVP00585

PATIENT
  Age: 35 Year
  Sex: Female

DRUGS (3)
  1. PREDNISONE [Suspect]
     Active Substance: PREDNISONE
     Indication: Lupus nephritis
  2. MYCOPHENOLATE MOFETIL [Concomitant]
     Active Substance: MYCOPHENOLATE MOFETIL
     Indication: Lupus nephritis
  3. HYDROXYCHLOROQUINE [Concomitant]
     Active Substance: HYDROXYCHLOROQUINE
     Indication: Lupus nephritis

REACTIONS (1)
  - Epstein-Barr virus associated lymphoproliferative disorder [Recovered/Resolved]
